FAERS Safety Report 9602473 (Version 2)
Quarter: 2013Q4

REPORT INFORMATION
  Report Type: Spontaneous
  Country: BE (occurrence: BE)
  Receive Date: 20131007
  Receipt Date: 20131015
  Transmission Date: 20140711
  Serious: Yes (Other)
  Sender: FDA-Public Use
  Company Number: BE-BAYER-2013-120321

PATIENT
  Sex: Female

DRUGS (3)
  1. MIRENA [Suspect]
     Indication: CONTRACEPTION
     Dosage: 20 ?G/D, CONT
     Route: 015
     Dates: start: 20120221, end: 20121218
  2. GLUCOPHAGE [Concomitant]
  3. SYMBICORT [Suspect]

REACTIONS (4)
  - Retinal degeneration [Not Recovered/Not Resolved]
  - Macular degeneration [Not Recovered/Not Resolved]
  - Stargardt^s disease [Not Recovered/Not Resolved]
  - Visual acuity reduced [Not Recovered/Not Resolved]
